FAERS Safety Report 15964761 (Version 3)
Quarter: 2019Q1

REPORT INFORMATION
  Report Type: Report from Study
  Country: CO (occurrence: CO)
  Receive Date: 20190215
  Receipt Date: 20190220
  Transmission Date: 20190418
  Serious: Yes (Hospitalization)
  Sender: FDA-Public Use
  Company Number: CO-ACTELION-A-CH2018-181484

PATIENT
  Age: 8 Year
  Sex: Female
  Weight: 16 kg

DRUGS (1)
  1. ZAVESCA [Suspect]
     Active Substance: MIGLUSTAT
     Indication: NIEMANN-PICK DISEASE
     Dosage: 100 MG, QD
     Route: 048
     Dates: start: 20160204

REACTIONS (9)
  - Cough [Recovering/Resolving]
  - Transfusion [Unknown]
  - Weight decreased [Recovering/Resolving]
  - Yellow skin [Recovering/Resolving]
  - Vomiting [Recovering/Resolving]
  - Anaemia [Recovering/Resolving]
  - Stomach granuloma [Not Recovered/Not Resolved]
  - Yellow fever [Not Recovered/Not Resolved]
  - Underweight [Recovering/Resolving]

NARRATIVE: CASE EVENT DATE: 2018
